FAERS Safety Report 8041754-5 (Version None)
Quarter: 2012Q1

REPORT INFORMATION
  Report Type: 
  Country: None (occurrence: None)
  Receive Date: 20120112
  Receipt Date: 20111212
  Transmission Date: 20120608
  Serious: Yes (Death)
  Sender: FDA-Public Use
  Company Number: PHHY2011NL115090

PATIENT
  Sex: Female

DRUGS (4)
  1. ZOMETA [Suspect]
     Indication: BREAST CANCER METASTATIC
     Dosage: 4MG/5ML CONCENTRATE FOR SOLUTION FOR INTRAVENOUS INFUSION ONCE PER 84 DAYS
     Dates: start: 20091216
  2. ZOMETA [Suspect]
     Dosage: 4MG/5ML CONCENTRATE FOR SOLUTION FOR INTRAVENOUS INFUSION ONCE PER 84 DAYS
     Dates: start: 20110920
  3. ZOMETA [Suspect]
     Dosage: 4MG/5ML CONCENTRATE FOR SOLUTION FOR INTRAVENOUS INFUSION ONCE PER 84 DAYS
     Dates: start: 20110624
  4. ZOMETA [Suspect]
     Dosage: 4MG/5ML CONCENTRATE FOR SOLUTION FOR INTRAVENOUS INFUSION ONCE PER 12 WEEKS
     Dates: start: 20101231

REACTIONS (1)
  - DEATH [None]
